FAERS Safety Report 5086099-0 (Version None)
Quarter: 2006Q3

REPORT INFORMATION
  Report Type: 
  Country: None (occurrence: None)
  Receive Date: 20060818
  Receipt Date: 20060809
  Transmission Date: 20061208
  Serious: Yes (Other)
  Sender: FDA-Public Use
  Company Number: 2006-08-0552

PATIENT
  Age: 46 Year
  Sex: Male

DRUGS (1)
  1. TEMODAL [Suspect]
     Indication: ANAPLASTIC ASTROCYTOMA
     Dosage: ORAL
     Route: 048

REACTIONS (2)
  - BLINDNESS UNILATERAL [None]
  - VISUAL ACUITY REDUCED [None]
